FAERS Safety Report 5928371-5 (Version None)
Quarter: 2008Q4

REPORT INFORMATION
  Report Type: 
  Country: None (occurrence: None)
  Receive Date: 20081023
  Receipt Date: 20081014
  Transmission Date: 20090506
  Serious: Yes (Death)
  Sender: FDA-Public Use
  Company Number: NO-PFIZER INC-2008084421

PATIENT

DRUGS (4)
  1. DOXORUBICIN HYDROCHLORIDE [Suspect]
     Indication: HODGKIN'S DISEASE
     Dosage: DAILY DOSE:50MG/M2
     Route: 042
  2. VINCRISTINE SULFATE [Suspect]
     Indication: HODGKIN'S DISEASE
     Dosage: DAILY DOSE:1.4MG/M2
     Route: 042
  3. CYCLOPHOSPHAMIDE [Suspect]
     Indication: HODGKIN'S DISEASE
     Dosage: DAILY DOSE:750MG/M2
     Route: 042
  4. PREDNISOLONE [Concomitant]
     Indication: HODGKIN'S DISEASE
     Dosage: DAILY DOSE:100MG
     Route: 048

REACTIONS (1)
  - MYOCARDIAL INFARCTION [None]
